FAERS Safety Report 6400502-2 (Version None)
Quarter: 2009Q4

REPORT INFORMATION
  Report Type: 
  Country: None (occurrence: None)
  Receive Date: 20091014
  Receipt Date: 20091006
  Transmission Date: 20100525
  Serious: Yes (Life-Threatening)
  Sender: FDA-Public Use
  Company Number: US-AMGEN-US368006

PATIENT
  Sex: Female
  Weight: 85 kg

DRUGS (14)
  1. PROCRIT [Suspect]
     Indication: ANAEMIA
     Route: 058
     Dates: start: 20090721, end: 20090822
  2. PEG-INTRON [Suspect]
     Indication: HEPATITIS C
     Route: 058
     Dates: start: 20081111, end: 20090822
  3. RIBAVIRIN [Suspect]
     Route: 048
     Dates: start: 20081111, end: 20090822
  4. UNSPECIFIED MEDICATION [Suspect]
     Dates: start: 20081208, end: 20090822
  5. NEUPOGEN [Concomitant]
     Dates: start: 20090204
  6. TYLENOL (CAPLET) [Concomitant]
     Dates: start: 20081111
  7. PANTOPRAZOLE SODIUM [Concomitant]
     Dates: start: 20090302
  8. METROGEL [Concomitant]
     Dates: start: 19940809
  9. KLOR-CON [Concomitant]
     Dates: start: 20021012
  10. HYDROCHLOROTHIAZIDE [Concomitant]
     Dates: start: 19990511
  11. PLENDIL [Concomitant]
     Dates: start: 20090716
  12. VITAMIN B COMPLEX CAP [Concomitant]
  13. ASCORBIC ACID [Concomitant]
  14. MULTI-VITAMINS [Concomitant]

REACTIONS (2)
  - PAIN [None]
  - PANCYTOPENIA [None]
